FAERS Safety Report 10312776 (Version 1)
Quarter: 2014Q3

REPORT INFORMATION
  Report Type: Spontaneous
  Country: FR (occurrence: None)
  Receive Date: 20140716
  Receipt Date: 20140716
  Transmission Date: 20150326
  Serious: Yes (Hospitalization)
  Sender: FDA-Public Use
  Company Number: FK201402683

PATIENT
  Age: 53 Year
  Sex: Female

DRUGS (14)
  1. CEFTRIAXON KABI (CEFTRIAXONE)(CEFTRIAXONE) [Suspect]
     Active Substance: CEFTRIAXONE
     Indication: PRODUCT USED FOR UNKNOWN INDICATION
     Dosage: INTRAVENOUS (NOT OTHERWISE)
     Route: 042
     Dates: start: 20140608, end: 20140617
  2. KARDEGIC(ACTYLSALICYLATE LYSINE) [Concomitant]
  3. LAMALINE(LAMALINE) [Concomitant]
  4. GRANOCTYPE(LENOGRASTIME) [Concomitant]
  5. VANCOMYCINE SANDOZ(VANCOMYCIN HDYROCHLORIDE)(VANCOMYCIN HYDROCHLORIDE)(VANCOMYCIN HYDROCHLORIDE) [Suspect]
     Active Substance: VANCOMYCIN
     Indication: PRODUCT USED FOR UNKNOWN INDICATION
     Dosage: IV (NOT OTHERWISE
     Route: 042
     Dates: start: 20140608, end: 20140617
  6. SPIRIVA [Concomitant]
     Active Substance: TIOTROPIUM BROMIDE MONOHYDRATE
  7. DEPAKINE(VALPROIC ACID) [Concomitant]
  8. ZOPHREN(ONDANSETERON) [Concomitant]
  9. EMEND(APREPITANT) [Concomitant]
  10. ITROCONAZOLE [Concomitant]
  11. SEROPRAM(CITALOPRAM HYDROBROMIDE) [Concomitant]
  12. CORTANCYL(PREDNISONE) [Concomitant]
  13. XNAX (ALPRAZOLAM) [Concomitant]
  14. SPECIAFOLDINE(FOLIC ACID) [Concomitant]

REACTIONS (9)
  - Gamma-glutamyltransferase increased [None]
  - Toxic skin eruption [None]
  - Pulmonary embolism [None]
  - Aspartate aminotransferase increased [None]
  - Pyrexia [None]
  - Rash generalised [None]
  - Renal failure [None]
  - Alanine aminotransferase increased [None]
  - Face oedema [None]

NARRATIVE: CASE EVENT DATE: 20140617
